FAERS Safety Report 12364380 (Version 1)
Quarter: 2016Q2

REPORT INFORMATION
  Report Type: Spontaneous
  Country: IT (occurrence: IT)
  Receive Date: 20160512
  Receipt Date: 20160512
  Transmission Date: 20160815
  Serious: Yes (Hospitalization)
  Sender: FDA-Public Use
  Company Number: IT-KADMON PHARMACEUTICALS, LLC-KAD201605-001727

PATIENT
  Age: 60 Year
  Sex: Male

DRUGS (8)
  1. SOVALDI [Suspect]
     Active Substance: SOFOSBUVIR
     Indication: CHRONIC HEPATITIS C
     Dosage: COATED TABLET
     Route: 048
     Dates: start: 20151105, end: 20160322
  2. ZOFENOPRIL [Concomitant]
     Active Substance: ZOFENOPRIL
  3. RIBAVIRIN. [Suspect]
     Active Substance: RIBAVIRIN
     Indication: CHRONIC HEPATITIS C
  4. CARDIOASPIRIN [Concomitant]
     Active Substance: ASPIRIN
  5. LIBRADIN [Concomitant]
     Active Substance: BARNIDIPINE HYDROCHLORIDE
  6. CYCLOSPORINE. [Concomitant]
     Active Substance: CYCLOSPORINE
  7. LANSOPRAZOLE. [Concomitant]
     Active Substance: LANSOPRAZOLE
  8. PROPRANOLOL [Concomitant]
     Active Substance: PROPRANOLOL\PROPRANOLOL HYDROCHLORIDE

REACTIONS (1)
  - Hypertransaminasaemia [Unknown]

NARRATIVE: CASE EVENT DATE: 20160317
